FAERS Safety Report 7224488-6 (Version None)
Quarter: 2011Q1

REPORT INFORMATION
  Report Type: 
  Country: None (occurrence: None)
  Receive Date: 20110113
  Receipt Date: 20110111
  Transmission Date: 20110831
  Serious: No
  Sender: FDA-Public Use
  Company Number: US-PFIZER INC-2011007317

PATIENT
  Sex: Female
  Weight: 59.8 kg

DRUGS (2)
  1. FLUCONAZOLE [Suspect]
     Indication: FUNGAL INFECTION
     Dosage: UNK
     Dates: end: 20100101
  2. DIFLUCAN [Suspect]
     Indication: FUNGAL INFECTION
     Dosage: 250 MG, AS NEEDED
     Route: 048
     Dates: end: 20100801

REACTIONS (5)
  - PALPITATIONS [None]
  - CONTUSION [None]
  - DRY SKIN [None]
  - SKIN DISCOLOURATION [None]
  - ERYTHEMA [None]
